FAERS Safety Report 4466028-0 (Version None)
Quarter: 2004Q3

REPORT INFORMATION
  Report Type: 
  Country: None (occurrence: None)
  Receive Date: 20040930
  Receipt Date: 20040930
  Transmission Date: 20050211
  Serious: Yes (Hospitalization)
  Sender: FDA-Public Use
  Company Number: None

PATIENT
  Sex: Female

DRUGS (11)
  1. LORATADINE [Suspect]
     Indication: SEASONAL ALLERGY
     Dosage: 10 MG DAILY ORAL
     Route: 048
     Dates: start: 20040608, end: 20040615
  2. RABEPRAZOLE SODIUM [Concomitant]
  3. RANITIDINE [Concomitant]
  4. ATENOLOL [Concomitant]
  5. BUSPIRONE [Concomitant]
  6. DICYCLOMINE [Concomitant]
  7. ALBUTEROL [Concomitant]
  8. GABAPENTIN [Concomitant]
  9. ATORVASTATIN CALCIUM [Concomitant]
  10. DOXEPIN HCL [Concomitant]
  11. ZANAFLEX [Concomitant]

REACTIONS (2)
  - CONFUSIONAL STATE [None]
  - HEADACHE [None]
